FAERS Safety Report 7302382-X (Version None)
Quarter: 2011Q1

REPORT INFORMATION
  Report Type: 
  Country: None (occurrence: None)
  Receive Date: 20110218
  Receipt Date: 20101101
  Transmission Date: 20110831
  Serious: No
  Sender: FDA-Public Use
  Company Number: US-ASTRAZENECA-2010SE52009

PATIENT
  Sex: Female

DRUGS (3)
  1. ADVAIR [Concomitant]
  2. ACCOLATE [Suspect]
     Indication: CHRONIC OBSTRUCTIVE PULMONARY DISEASE
     Route: 048
  3. TYLENOL [Concomitant]

REACTIONS (2)
  - ARTHRITIS [None]
  - DYSPHONIA [None]
